FAERS Safety Report 9734813 (Version 3)
Quarter: 2014Q1

REPORT INFORMATION
  Report Type: Spontaneous
  Country: BR (occurrence: BR)
  Receive Date: 20131206
  Receipt Date: 20140113
  Transmission Date: 20141002
  Serious: Yes (Hospitalization, Other)
  Sender: FDA-Public Use
  Company Number: BR-JNJFOC-20131200760

PATIENT
  Age: 64 Year
  Sex: Female
  Weight: 74 kg

DRUGS (7)
  1. REMICADE [Suspect]
     Indication: RHEUMATOID ARTHRITIS
     Route: 042
     Dates: start: 20131227
  2. REMICADE [Suspect]
     Indication: RHEUMATOID ARTHRITIS
     Route: 042
     Dates: start: 20130926
  3. REMICADE [Suspect]
     Indication: RHEUMATOID ARTHRITIS
     Route: 042
     Dates: start: 200801
  4. METHOTREXATE [Concomitant]
     Route: 065
  5. NIMESULIDE BETA-CYCLODEXTRINE [Concomitant]
     Indication: ANALGESIC THERAPY
     Route: 065
     Dates: start: 20131025
  6. ACETAMINOPHEN [Concomitant]
     Indication: ANALGESIC THERAPY
     Route: 065
     Dates: start: 20131025
  7. DIPYRONE [Concomitant]
     Indication: ANALGESIC THERAPY
     Route: 065
     Dates: start: 20131025

REACTIONS (3)
  - Fall [Recovering/Resolving]
  - Upper limb fracture [Recovering/Resolving]
  - Weight increased [Recovered/Resolved]
